FAERS Safety Report 5521857-7 (Version None)
Quarter: 2007Q4

REPORT INFORMATION
  Report Type: 
  Country: None (occurrence: None)
  Receive Date: 20071120
  Receipt Date: 20071113
  Transmission Date: 20080405
  Serious: Yes (Hospitalization)
  Sender: FDA-Public Use
  Company Number: FR-ROCHE-524591

PATIENT
  Age: 61 Year
  Sex: Female
  Weight: 60 kg

DRUGS (6)
  1. BONIVA [Suspect]
     Indication: OSTEOPOROSIS
     Route: 048
     Dates: start: 20070430, end: 20070830
  2. ZOLPIDEM TARTRATE [Concomitant]
     Dosage: DOSAGE REGIMEN 1 DOSE DAILY
     Route: 048
     Dates: start: 20070913
  3. STRUCTUM [Concomitant]
     Dosage: DOSAGE REGIMEN 3 DOSE DAILY
     Route: 048
     Dates: start: 20000101
  4. IMPORTAL [Concomitant]
     Dosage: DOSAGE REGIMEN 2 DOSES DAILY
     Route: 048
     Dates: start: 19980101
  5. FIXICAL VITAMINE D(3) [Concomitant]
     Dosage: DOSAGE REGIMEN 2 DOSES DAILY
     Route: 048
     Dates: start: 20070430
  6. TAHOR [Concomitant]
     Route: 048
     Dates: start: 20041008

REACTIONS (8)
  - ANOREXIA [None]
  - CONFUSIONAL STATE [None]
  - CONSTIPATION [None]
  - DYSTHYMIC DISORDER [None]
  - HALLUCINATION [None]
  - HEADACHE [None]
  - OESOPHAGEAL PAIN [None]
  - VENOUS THROMBOSIS LIMB [None]
